FAERS Safety Report 4436272-7 (Version None)
Quarter: 2004Q3

REPORT INFORMATION
  Report Type: 
  Country: None (occurrence: None)
  Receive Date: 20040830
  Receipt Date: 20040621
  Transmission Date: 20050211
  Serious: Yes (Other)
  Sender: FDA-Public Use
  Company Number: US-BRISTOL-MYERS SQUIBB COMPANY-12620530

PATIENT
  Age: 63 Year
  Sex: Male
  Weight: 93 kg

DRUGS (2)
  1. ERBITUX [Suspect]
     Indication: COLON CANCER
     Dosage: 1ST DOSE. 2ND DOSE 07-JUN-2004, 3RD DOSE 15-JUN-04 (450MG)
     Route: 042
     Dates: start: 20040601, end: 20040601
  2. BENADRYL [Concomitant]
     Indication: PREMEDICATION
     Route: 042
     Dates: start: 20040601, end: 20040601

REACTIONS (2)
  - RASH [None]
  - RASH GENERALISED [None]
